FAERS Safety Report 6340961-7 (Version None)
Quarter: 2009Q3

REPORT INFORMATION
  Report Type: 
  Country: None (occurrence: None)
  Receive Date: 20090902
  Receipt Date: 20090902
  Transmission Date: 20100115
  Serious: No
  Sender: FDA-Public Use
  Company Number: None

PATIENT
  Age: 54 Year
  Sex: Female

DRUGS (1)
  1. THYROID TAB [Suspect]
     Dosage: ONE AND ONE-HALF TABLETS DAILY

REACTIONS (3)
  - MOUTH ULCERATION [None]
  - ORAL DISCOMFORT [None]
  - PRODUCT FORMULATION ISSUE [None]
